FAERS Safety Report 11771377 (Version 1)
Quarter: 2015Q4

REPORT INFORMATION
  Report Type: Spontaneous
  Country: FR (occurrence: FR)
  Receive Date: 20151124
  Receipt Date: 20151124
  Transmission Date: 20160304
  Serious: Yes (Hospitalization)
  Sender: FDA-Public Use
  Company Number: FR-ROCHE-1663984

PATIENT
  Age: 89 Year
  Sex: Female
  Weight: 50 kg

DRUGS (17)
  1. FOLIC ACID. [Concomitant]
     Active Substance: FOLIC ACID
  2. INEXIUM [Concomitant]
     Active Substance: ESOMEPRAZOLE
     Route: 048
  3. FENOFIBRATE. [Concomitant]
     Active Substance: FENOFIBRATE
     Route: 065
  4. AMOXICILLINE [Concomitant]
     Active Substance: AMOXICILLIN
     Route: 048
  5. BACTRIM [Suspect]
     Active Substance: SULFAMETHOXAZOLE\TRIMETHOPRIM
     Indication: PRODUCT USED FOR UNKNOWN INDICATION
     Route: 048
     Dates: start: 20150826, end: 20150831
  6. FENOFIBRATE. [Concomitant]
     Active Substance: FENOFIBRATE
     Route: 065
     Dates: start: 20150822, end: 20150825
  7. DIFFU K [Concomitant]
     Active Substance: POTASSIUM CHLORIDE
     Route: 048
  8. PREVNAR 13 [Concomitant]
     Active Substance: PNEUMOCOCCAL 13-VALENT CONJUGATE VACCINE
     Route: 030
  9. UVEDOSE [Concomitant]
     Active Substance: CHOLECALCIFEROL
     Route: 048
  10. IXPRIM [Concomitant]
     Active Substance: ACETAMINOPHEN\TRAMADOL HYDROCHLORIDE
  11. MABTHERA [Suspect]
     Active Substance: RITUXIMAB
     Indication: PRODUCT USED FOR UNKNOWN INDICATION
     Dosage: SINGLE INTAKE
     Route: 041
     Dates: start: 20150829, end: 20150829
  12. LOVENOX [Concomitant]
     Active Substance: ENOXAPARIN SODIUM
  13. PERINDOPRIL [Suspect]
     Active Substance: PERINDOPRIL
     Indication: PRODUCT USED FOR UNKNOWN INDICATION
     Route: 048
     Dates: end: 20150831
  14. CORTANCYL [Concomitant]
     Active Substance: PREDNISONE
     Route: 048
  15. CALCIDOSE (FRANCE) [Concomitant]
     Active Substance: CALCIUM CARBONATE
     Route: 048
  16. FURADANTINE [Concomitant]
     Active Substance: NITROFURANTOIN
     Route: 048
  17. AMLODIPINE [Concomitant]
     Active Substance: AMLODIPINE BESYLATE
     Route: 048

REACTIONS (2)
  - Acute kidney injury [Recovered/Resolved]
  - Creatinine renal clearance decreased [Recovered/Resolved]

NARRATIVE: CASE EVENT DATE: 20150831
